FAERS Safety Report 9029526 (Version 3)
Quarter: 2013Q1

REPORT INFORMATION
  Report Type: Spontaneous
  Country: US (occurrence: US)
  Receive Date: 20130125
  Receipt Date: 20130319
  Transmission Date: 20140127
  Serious: Yes (Other)
  Sender: FDA-Public Use
  Company Number: US-009507513-1301USA010409

PATIENT
  Age: 54 None
  Sex: Female
  Weight: 76.64 kg

DRUGS (2)
  1. RIBAVIRIN [Suspect]
     Indication: HEPATITIS C
     Dosage: UNK
     Route: 048
     Dates: start: 20130112
  2. PEG-INTRON [Suspect]
     Indication: HEPATITIS C
     Dosage: UNK
     Dates: start: 20130112

REACTIONS (33)
  - Aggression [Unknown]
  - Sinusitis [Unknown]
  - Headache [Unknown]
  - Depression [Unknown]
  - Myalgia [Unknown]
  - Anxiety [Unknown]
  - Memory impairment [Unknown]
  - Herpes simplex [Unknown]
  - Decreased appetite [Unknown]
  - Weight decreased [Unknown]
  - Anger [Unknown]
  - Anaemia [Unknown]
  - Tachycardia [Unknown]
  - Dyspnoea [Unknown]
  - Mouth ulceration [Unknown]
  - Fatigue [Unknown]
  - Decreased appetite [Unknown]
  - Constipation [Unknown]
  - Hyperhidrosis [Unknown]
  - Pyrexia [Unknown]
  - Hot flush [Unknown]
  - Oropharyngeal pain [Unknown]
  - Memory impairment [Unknown]
  - Irritability [Unknown]
  - Anger [Unknown]
  - Dry mouth [Unknown]
  - Haemoglobin decreased [Unknown]
  - Fatigue [Unknown]
  - Dyspnoea [Unknown]
  - Heart rate increased [Unknown]
  - Abdominal pain [Unknown]
  - Anaemia [Unknown]
  - Tachycardia [Unknown]
